FAERS Safety Report 13919680 (Version 1)
Quarter: 2017Q3

REPORT INFORMATION
  Report Type: Spontaneous
  Country: US (occurrence: US)
  Receive Date: 20170830
  Receipt Date: 20170830
  Transmission Date: 20171127
  Serious: No
  Sender: FDA-Public Use
  Company Number: US-ENDO PHARMACEUTICALS INC-2017-000979

PATIENT
  Sex: Female

DRUGS (2)
  1. LACTULOSE ORAL SOLUTION [Suspect]
     Active Substance: LACTULOSE
     Indication: CONSTIPATION
  2. LACTULOSE ORAL SOLUTION [Suspect]
     Active Substance: LACTULOSE
     Indication: AMMONIA INCREASED
     Dosage: UNK UNK, UNKNOWN
     Route: 065

REACTIONS (2)
  - Cough [Unknown]
  - Muscle spasms [Unknown]
